FAERS Safety Report 24422395 (Version 1)
Quarter: 2024Q4

REPORT INFORMATION
  Report Type: Spontaneous
  Country: US (occurrence: US)
  Receive Date: 20241010
  Receipt Date: 20241010
  Transmission Date: 20250115
  Serious: No
  Sender: MISSION
  Company Number: US-Mission Pharmacal Company-2162740

PATIENT
  Age: 33 Year
  Sex: Female

DRUGS (1)
  1. THIOLA EC [Suspect]
     Active Substance: TIOPRONIN
     Indication: Cystinuria
     Dates: start: 20170911

REACTIONS (3)
  - Drug ineffective [Unknown]
  - Discharge [Unknown]
  - Micturition disorder [Unknown]
